FAERS Safety Report 9829253 (Version 1)
Quarter: 2014Q1

REPORT INFORMATION
  Report Type: Spontaneous
  Country: US (occurrence: US)
  Receive Date: 20140120
  Receipt Date: 20140120
  Transmission Date: 20141002
  Serious: Yes (Hospitalization)
  Sender: FDA-Public Use
  Company Number: US-MYLANLABS-2014S1000696

PATIENT
  Age: 64 Year
  Sex: Male
  Weight: 73.94 kg

DRUGS (7)
  1. CLOPIDOGREL TABLETS USP [Suspect]
     Indication: STENT PLACEMENT
     Route: 048
     Dates: start: 201311, end: 201312
  2. CLOPIDOGREL TABLETS USP [Suspect]
     Indication: STENT PLACEMENT
     Route: 048
     Dates: start: 201312, end: 20140104
  3. VIAGRA [Suspect]
     Route: 048
     Dates: start: 20131217, end: 20131217
  4. EDARBYCLOR [Suspect]
     Indication: BLOOD PRESSURE INCREASED
     Route: 048
  5. ASPIRIN [Concomitant]
     Route: 048
  6. LOVAZA [Concomitant]
  7. ANDROGEL [Concomitant]

REACTIONS (8)
  - Presyncope [Recovered/Resolved]
  - Potentiating drug interaction [Recovered/Resolved]
  - Influenza like illness [Recovering/Resolving]
  - Gait disturbance [Recovering/Resolving]
  - Blood pressure decreased [Recovering/Resolving]
  - Myalgia [Recovering/Resolving]
  - Night sweats [Recovering/Resolving]
  - Dizziness [Recovering/Resolving]
